FAERS Safety Report 19101482 (Version 1)
Quarter: 2021Q2

REPORT INFORMATION
  Report Type: Spontaneous
  Country: US (occurrence: US)
  Receive Date: 20210406
  Receipt Date: 20210406
  Transmission Date: 20210717
  Serious: Yes (Other)
  Sender: FDA-Public Use
  Company Number: None

PATIENT
  Age: 57 Year
  Sex: Female

DRUGS (15)
  1. LORATADINE. [Concomitant]
     Active Substance: LORATADINE
  2. ATORVASTATIN [Concomitant]
     Active Substance: ATORVASTATIN
  3. DOXYCYCL HYC [Concomitant]
  4. LEVOTHYROXIN [Concomitant]
     Active Substance: LEVOTHYROXINE
  5. OMEPRAZOLE. [Concomitant]
     Active Substance: OMEPRAZOLE
  6. DULOXETINE. [Concomitant]
     Active Substance: DULOXETINE
  7. PREGABALIN. [Concomitant]
     Active Substance: PREGABALIN
  8. FLUTICASONE. [Concomitant]
     Active Substance: FLUTICASONE
  9. CELECOXIB. [Concomitant]
     Active Substance: CELECOXIB
  10. METFORMIN ER [Concomitant]
     Active Substance: METFORMIN HYDROCHLORIDE
  11. LIOTHYRONINE [Concomitant]
     Active Substance: LIOTHYRONINE
  12. IRBESAR/HCTZ [Concomitant]
  13. AMOX/K CLAV [Concomitant]
     Active Substance: AMOXICILLIN\CLAVULANATE POTASSIUM
  14. TALTZ [Suspect]
     Active Substance: IXEKIZUMAB
     Indication: PSORIATIC ARTHROPATHY
     Dosage: ?          OTHER FREQUENCY:EVERY 4 WEEKS;?
     Route: 058
     Dates: start: 20201001
  15. FARXIGA [Concomitant]
     Active Substance: DAPAGLIFLOZIN PROPANEDIOL

REACTIONS (3)
  - Surgery [None]
  - Condition aggravated [None]
  - Therapy interrupted [None]
